FAERS Safety Report 6244480-8 (Version None)
Quarter: 2009Q2

REPORT INFORMATION
  Report Type: 
  Country: None (occurrence: None)
  Receive Date: 20090625
  Receipt Date: 20090617
  Transmission Date: 20091009
  Serious: Yes (Other)
  Sender: FDA-Public Use
  Company Number: US-ASTRAZENECA-2008UW26512

PATIENT
  Age: 49 Year
  Sex: Male
  Weight: 91.2 kg

DRUGS (6)
  1. SEROQUEL [Suspect]
     Indication: POST-TRAUMATIC STRESS DISORDER
     Dosage: 25 MG; 25 MG BID; 100 + 500 MG
     Route: 048
     Dates: start: 19990101, end: 20080601
  2. SEROQUEL [Suspect]
     Indication: SCHIZOPHRENIA
     Dosage: 25 MG; 25 MG BID; 100 + 500 MG
     Route: 048
     Dates: start: 19990101, end: 20080601
  3. ABILIFY [Concomitant]
     Dates: start: 20060801, end: 20061201
  4. ABILIFY [Concomitant]
     Dates: start: 20080801
  5. RISPERDAL [Concomitant]
  6. FLUOXETINE HCL [Concomitant]
     Dates: start: 20060801, end: 20061001

REACTIONS (10)
  - AGORAPHOBIA [None]
  - ANXIETY [None]
  - CARDIAC FAILURE CONGESTIVE [None]
  - DIABETES MELLITUS [None]
  - DIABETIC COMA [None]
  - HEPATIC ENZYME INCREASED [None]
  - LETHARGY [None]
  - NECK MASS [None]
  - PANCREATITIS [None]
  - WEIGHT INCREASED [None]
